FAERS Safety Report 20795907 (Version 3)
Quarter: 2022Q3

REPORT INFORMATION
  Report Type: Spontaneous
  Country: JP (occurrence: JP)
  Receive Date: 20220506
  Receipt Date: 20220705
  Transmission Date: 20221026
  Serious: No
  Sender: FDA-Public Use
  Company Number: JP-GLAXOSMITHKLINE-JP2022JPN072025

PATIENT

DRUGS (7)
  1. SOTROVIMAB [Suspect]
     Active Substance: SOTROVIMAB
     Indication: Coronavirus test positive
     Dosage: 500 MG
     Route: 041
     Dates: start: 20220202, end: 20220202
  2. FERRIC PYROPHOSPHATE [Suspect]
     Active Substance: FERRIC PYROPHOSPHATE
     Dosage: 90 MG/DAY
     Route: 048
     Dates: start: 20220125
  3. DOMIPHEN BROMIDE [Suspect]
     Active Substance: DOMIPHEN BROMIDE
     Dosage: AS NEEDED
     Dates: start: 20220125
  4. CALONAL [Suspect]
     Active Substance: ACETAMINOPHEN
     Dosage: AS NEEDED
     Route: 048
     Dates: start: 20220125
  5. FERROUS SULFATE [Suspect]
     Active Substance: FERROUS SULFATE
     Dosage: 210 MG/DAY
     Route: 048
     Dates: start: 20211117
  6. CEFCAPENE PIVOXIL HYDROCHLORIDE HYDRATE [Suspect]
     Active Substance: CEFCAPENE PIVOXIL HYDROCHLORIDE HYDRATE
     Dosage: 300 MG/DAY
     Route: 048
     Dates: start: 20211002
  7. INFLUENZA VIRUS VACCINE [Suspect]
     Active Substance: INFLUENZA VIRUS VACCINE
     Dosage: 0.5 ML
     Route: 058
     Dates: start: 20211117

REACTIONS (2)
  - Exposure during pregnancy [Unknown]
  - Live birth [Unknown]
